FAERS Safety Report 4815245-6 (Version None)
Quarter: 2005Q4

REPORT INFORMATION
  Report Type: 
  Country: None (occurrence: None)
  Receive Date: 20051028
  Receipt Date: 20050722
  Transmission Date: 20060501
  Serious: Yes (Hospitalization, Disabling)
  Sender: FDA-Public Use
  Company Number: US-MERCK-0507USA03811

PATIENT
  Age: 39 Year
  Sex: Female
  Weight: 114 kg

DRUGS (6)
  1. VIOXX [Suspect]
     Indication: CYST
     Route: 048
     Dates: start: 20010711, end: 20021101
  2. VIOXX [Suspect]
     Route: 048
     Dates: start: 20040129, end: 20040801
  3. VIOXX [Suspect]
     Indication: PAIN IN EXTREMITY
     Route: 048
     Dates: start: 20010711, end: 20021101
  4. VIOXX [Suspect]
     Route: 048
     Dates: start: 20040129, end: 20040801
  5. ACETAMINOPHEN AND HYDROCODONE BITARTRATE [Concomitant]
     Indication: PAIN
     Route: 048
     Dates: start: 20010201
  6. ORTHO NOVUM 2/50 21 TAB [Concomitant]
     Indication: OVARIAN CYST
     Route: 048
     Dates: start: 20010501

REACTIONS (22)
  - ACUTE CORONARY SYNDROME [None]
  - BACTERIAL INFECTION [None]
  - BLOOD CHOLESTEROL INCREASED [None]
  - BLOOD POTASSIUM DECREASED [None]
  - CORONARY ARTERY DISEASE [None]
  - COUGH [None]
  - DYSPEPSIA [None]
  - EXOSTOSIS [None]
  - FIBROCYSTIC BREAST DISEASE [None]
  - FUNGAL INFECTION [None]
  - GASTRIC ULCER [None]
  - GASTRITIS [None]
  - GASTROOESOPHAGEAL REFLUX DISEASE [None]
  - HIATUS HERNIA [None]
  - HYPERSENSITIVITY [None]
  - INFECTION [None]
  - LOCALISED INFECTION [None]
  - MYOCARDIAL INFARCTION [None]
  - RENAL CYST [None]
  - SKIN IRRITATION [None]
  - SWELLING [None]
  - URINARY TRACT INFECTION [None]
